FAERS Safety Report 8902189 (Version 1)
Quarter: 2012Q4

REPORT INFORMATION
  Report Type: 
  Country: MX (occurrence: MX)
  Receive Date: 20121112
  Receipt Date: 20121112
  Transmission Date: 20130627
  Serious: Yes (Death)
  Sender: FDA-Public Use
  Company Number: PHHY2012MX104052

PATIENT
  Age: 78 Year
  Sex: Female

DRUGS (5)
  1. CO-DIOVAN [Suspect]
     Indication: HYPERTENSION
     Dosage: 1 tablet (160/12.5mg) daily
  2. EXFORGE HCT [Suspect]
     Dosage: UNK
  3. ASPIRIN PROTECT [Concomitant]
     Dosage: UNK
     Dates: end: 201210
  4. IMOT [Concomitant]
     Dosage: 1 drp daily
     Dates: end: 201210
  5. XANAT [Concomitant]
     Dosage: 1 Drop daily

REACTIONS (1)
  - Pancreatitis [Fatal]
